FAERS Safety Report 7212060-3 (Version None)
Quarter: 2011Q1

REPORT INFORMATION
  Report Type: 
  Country: None (occurrence: None)
  Receive Date: 20110106
  Receipt Date: 20101229
  Transmission Date: 20110831
  Serious: Yes (Hospitalization, Other)
  Sender: FDA-Public Use
  Company Number: JP-AMGEN-JPNSP2011000482

PATIENT

DRUGS (16)
  1. GASTER [Concomitant]
  2. THEO-DUR [Concomitant]
  3. ENBREL [Suspect]
     Indication: RHEUMATOID ARTHRITIS
     Dosage: 25 MG, UNK
     Route: 058
     Dates: start: 20091130, end: 20101216
  4. PREDONINE [Concomitant]
  5. LOXONIN [Concomitant]
  6. RIMATIL [Concomitant]
  7. PAROTIN [Concomitant]
  8. FLUTIDE DISKUS [Concomitant]
  9. JUVELA NICOTINATE [Concomitant]
  10. ALINAMIN [Concomitant]
  11. KETOPROFEN [Concomitant]
  12. HYALEIN [Concomitant]
  13. ADALAT CC [Concomitant]
  14. AZULFIDINE [Concomitant]
  15. ALLEGRA [Concomitant]
  16. MEPTIN [Concomitant]

REACTIONS (2)
  - DYSPNOEA [None]
  - PNEUMONIA [None]
